FAERS Safety Report 15820742 (Version 1)
Quarter: 2019Q1

REPORT INFORMATION
  Report Type: Spontaneous
  Country: AU (occurrence: AU)
  Receive Date: 20190114
  Receipt Date: 20190114
  Transmission Date: 20190417
  Serious: Yes (Hospitalization, Other)
  Sender: FDA-Public Use
  Company Number: AU-APOTEX-2019AP005226

PATIENT
  Sex: Male

DRUGS (1)
  1. APOTEX-METFORMIN XR 500 [Suspect]
     Active Substance: METFORMIN HYDROCHLORIDE
     Indication: PRODUCT USED FOR UNKNOWN INDICATION
     Dosage: UNK
     Route: 048

REACTIONS (12)
  - Memory impairment [Recovered/Resolved]
  - Headache [Recovered/Resolved]
  - Heart rate decreased [Unknown]
  - Muscle spasms [Unknown]
  - Arthritis [Unknown]
  - Arthralgia [Recovering/Resolving]
  - Emotional distress [Unknown]
  - Insomnia [Unknown]
  - Pain in extremity [Recovering/Resolving]
  - Back pain [Recovering/Resolving]
  - General physical health deterioration [Unknown]
  - Gait disturbance [Recovering/Resolving]
